FAERS Safety Report 13865619 (Version 1)
Quarter: 2017Q3

REPORT INFORMATION
  Report Type: Spontaneous
  Country: FR (occurrence: FR)
  Receive Date: 20170814
  Receipt Date: 20170814
  Transmission Date: 20171127
  Serious: Yes (Other)
  Sender: FDA-Public Use
  Company Number: FR-LPDUSPRD-20160712

PATIENT

DRUGS (1)
  1. FERINJECT [Suspect]
     Active Substance: FERRIC CARBOXYMALTOSE
     Dosage: UNKNOWN
     Route: 041
     Dates: start: 2014

REACTIONS (5)
  - Hypophosphataemia [Unknown]
  - Blood parathyroid hormone increased [Unknown]
  - Vitamin D deficiency [Unknown]
  - Bone pain [Unknown]
  - Fracture [Unknown]
